FAERS Safety Report 25767854 (Version 1)
Quarter: 2025Q3

REPORT INFORMATION
  Report Type: Spontaneous
  Country: EU (occurrence: EU)
  Receive Date: 20250905
  Receipt Date: 20250905
  Transmission Date: 20251021
  Serious: Yes (Other)
  Sender: GENMAB
  Company Number: EU-ABBVIE-6439345

PATIENT
  Age: 26 Year
  Sex: Male

DRUGS (1)
  1. EPCORITAMAB [Suspect]
     Active Substance: EPCORITAMAB
     Indication: Diffuse large B-cell lymphoma
     Route: 058
     Dates: start: 20241010, end: 202501

REACTIONS (18)
  - Respiratory failure [Unknown]
  - Enterococcal sepsis [Unknown]
  - Myelosuppression [Unknown]
  - Hepatorenal syndrome [Unknown]
  - Systemic candida [Not Recovered/Not Resolved]
  - Pseudomonal sepsis [Unknown]
  - Immune effector cell-associated neurotoxicity syndrome [Unknown]
  - Cholangitis infective [Not Recovered/Not Resolved]
  - Splenomegaly [Unknown]
  - Graft versus host disease in liver [Unknown]
  - Immunoglobulins decreased [Unknown]
  - Cachexia [Unknown]
  - Pleurisy [Unknown]
  - Gastrointestinal inflammation [Unknown]
  - Pyrexia [Unknown]
  - Neutropenia [Unknown]
  - Pneumonia [Unknown]
  - Cytokine release syndrome [Unknown]

NARRATIVE: CASE EVENT DATE: 20250814
